FAERS Safety Report 23528688 (Version 1)
Quarter: 2024Q1

REPORT INFORMATION
  Report Type: Spontaneous
  Country: DE (occurrence: DE)
  Receive Date: 20240215
  Receipt Date: 20240215
  Transmission Date: 20240410
  Serious: Yes (Hospitalization)
  Sender: FDA-Public Use
  Company Number: DE-SANOFI-01582218

PATIENT
  Age: 68 Year
  Sex: Male
  Weight: 110 kg

DRUGS (8)
  1. BORTEZOMIB [Suspect]
     Active Substance: BORTEZOMIB
     Indication: Plasma cell myeloma
     Dosage: 286 MG
     Route: 058
     Dates: start: 20230925, end: 20240125
  2. DEXAMETHASONE [Suspect]
     Active Substance: DEXAMETHASONE
     Indication: Plasma cell myeloma
     Dosage: 20 MG, QD
     Route: 042
  3. ISATUXIMAB [Suspect]
     Active Substance: ISATUXIMAB
     Indication: Plasma cell myeloma
     Dosage: 1100 MG
     Route: 042
     Dates: start: 20230417, end: 20230417
  4. ISATUXIMAB [Suspect]
     Active Substance: ISATUXIMAB
     Dosage: 990 MG, (990 UNK)
     Route: 042
     Dates: start: 20230925, end: 20240122
  5. LENALIDOMIDE [Suspect]
     Active Substance: LENALIDOMIDE
     Indication: Plasma cell myeloma
     Dosage: UNK, (25 UNK)
     Route: 048
     Dates: start: 20230925
  6. PRIVIGEN [Concomitant]
     Active Substance: HUMAN IMMUNOGLOBULIN G
     Indication: Blood immunoglobulin G
     Dosage: 20 G
     Route: 042
     Dates: start: 20231218
  7. VALACYCLOVIR HYDROCHLORIDE [Concomitant]
     Active Substance: VALACYCLOVIR HYDROCHLORIDE
     Indication: Product used for unknown indication
     Dosage: UNK, (1000 UNK)
     Route: 065
     Dates: start: 20230922
  8. VALSARTAN [Concomitant]
     Active Substance: VALSARTAN
     Indication: Hypothyroidism
     Dosage: 40 MG
     Route: 065
     Dates: start: 20231211

REACTIONS (2)
  - Presyncope [Unknown]
  - Visual impairment [Unknown]

NARRATIVE: CASE EVENT DATE: 20230417
